FAERS Safety Report 17557841 (Version 6)
Quarter: 2021Q1

REPORT INFORMATION
  Report Type: Spontaneous
  Country: US (occurrence: US)
  Receive Date: 20200318
  Receipt Date: 20210329
  Transmission Date: 20210419
  Serious: No
  Sender: FDA-Public Use
  Company Number: US-PFIZER INC-2020114776

PATIENT
  Age: 62 Year
  Sex: Male
  Weight: 83.91 kg

DRUGS (2)
  1. CHANTIX [Suspect]
     Active Substance: VARENICLINE TARTRATE
     Dosage: 1 MG, 2X/DAY (1MG ORALLY TWICE A DAY ONCE IN THE MORNING ONCE AT NIGHT)
     Route: 048
     Dates: start: 2020
  2. CHANTIX [Suspect]
     Active Substance: VARENICLINE TARTRATE
     Indication: SMOKING CESSATION THERAPY
     Dosage: 1 MG, 2X/DAY [1MG TABLET IN THE MORNING AND 1MG TABLET AT NIGHT]

REACTIONS (3)
  - Product use issue [Unknown]
  - Therapeutic product effect decreased [Unknown]
  - Off label use [Unknown]
